FAERS Safety Report 8432585-2 (Version None)
Quarter: 2012Q2

REPORT INFORMATION
  Report Type: 
  Country: None (occurrence: None)
  Receive Date: 20120613
  Receipt Date: 20120608
  Transmission Date: 20120825
  Serious: Yes (Hospitalization, Other)
  Sender: FDA-Public Use
  Company Number: US-AMGEN-USASP2012035510

PATIENT
  Age: 60 Year
  Sex: Female

DRUGS (1)
  1. ENBREL [Suspect]
     Indication: RHEUMATOID ARTHRITIS
     Dosage: UNK
     Dates: start: 20000101

REACTIONS (10)
  - IMPAIRED GASTRIC EMPTYING [None]
  - GLAUCOMA [None]
  - HERPES OPHTHALMIC [None]
  - ABDOMINAL HERNIA [None]
  - LACERATION [None]
  - GLYCOSYLATED HAEMOGLOBIN INCREASED [None]
  - CATARACT [None]
  - HYPERHIDROSIS [None]
  - BLOOD GLUCOSE ABNORMAL [None]
  - WEIGHT DECREASED [None]
